FAERS Safety Report 9349844 (Version 1)
Quarter: 2013Q2

REPORT INFORMATION
  Report Type: Spontaneous
  Country: AU (occurrence: None)
  Receive Date: 20130611
  Receipt Date: 20130611
  Transmission Date: 20140414
  Serious: No
  Sender: FDA-Public Use
  Company Number: AU-ALSI-201300141

PATIENT
  Age: 78 Year
  Sex: Male

DRUGS (1)
  1. OXYGEN [Suspect]
     Dosage: 100 PCT

REACTIONS (2)
  - Apnoea [None]
  - Overdose [None]
